FAERS Safety Report 21323666 (Version 1)
Quarter: 2022Q3

REPORT INFORMATION
  Report Type: Other
  Country: US (occurrence: US)
  Receive Date: 20220912
  Receipt Date: 20220912
  Transmission Date: 20221027
  Serious: No
  Sender: FDA-Public Use
  Company Number: US-LEADIANT BIOSCIENCES, INC.-2022STPI000023

PATIENT
  Sex: Female

DRUGS (4)
  1. MATULANE [Suspect]
     Active Substance: PROCARBAZINE HYDROCHLORIDE
     Indication: Brain neoplasm malignant
     Dosage: 50 MILLIGRAM, 2 CAPSULES BY MOUTH DAILY ON DAYS 8 TO 21 OF 28 DAY CYCLE
     Route: 048
     Dates: start: 20211130
  2. LOMUSTINE [Concomitant]
     Active Substance: LOMUSTINE
     Indication: Brain neoplasm malignant
  3. VINCRISTINE [Concomitant]
     Active Substance: VINCRISTINE
     Indication: Brain neoplasm malignant
  4. NEURONTIN [Concomitant]
     Active Substance: GABAPENTIN
     Indication: Seizure

REACTIONS (3)
  - Fatigue [Unknown]
  - Pain [Unknown]
  - Neuropathy peripheral [Unknown]
